FAERS Safety Report 17168048 (Version 2)
Quarter: 2020Q2

REPORT INFORMATION
  Report Type: Report from Study
  Country: US (occurrence: US)
  Receive Date: 20191218
  Receipt Date: 20200609
  Transmission Date: 20200713
  Serious: No
  Sender: FDA-Public Use
  Company Number: NVSC2019US072875

PATIENT
  Age: 64 Year
  Sex: Male

DRUGS (1)
  1. MAYZENT [Suspect]
     Active Substance: SIPONIMOD
     Indication: MULTIPLE SCLEROSIS
     Dosage: 2 MG, QD
     Route: 048
     Dates: start: 20191011, end: 20200604

REACTIONS (6)
  - Disorientation [Unknown]
  - Cognitive disorder [Unknown]
  - Dizziness [Unknown]
  - Neurological symptom [Unknown]
  - Vision blurred [Not Recovered/Not Resolved]
  - Full blood count abnormal [Unknown]

NARRATIVE: CASE EVENT DATE: 201911
